FAERS Safety Report 20835900 (Version 8)
Quarter: 2025Q1

REPORT INFORMATION
  Report Type: Report from Study
  Country: DE (occurrence: DE)
  Receive Date: 20220516
  Receipt Date: 20250120
  Transmission Date: 20250409
  Serious: Yes (Hospitalization, Other)
  Sender: ROCHE
  Company Number: DE-ROCHE-2557580

PATIENT
  Age: 59 Year
  Sex: Female

DRUGS (5)
  1. OCREVUS [Suspect]
     Active Substance: OCRELIZUMAB
     Indication: Relapsing-remitting multiple sclerosis
     Dosage: 600MG, 185 DAYS, 300 MG 182 DAYS
     Route: 042
     Dates: start: 20180831
  2. OCREVUS [Suspect]
     Active Substance: OCRELIZUMAB
     Dosage: 183 DAYS
     Route: 042
     Dates: start: 20191009
  3. OCREVUS [Suspect]
     Active Substance: OCRELIZUMAB
     Route: 042
  4. COMIRNATY (TOZINAMERAN) [Suspect]
     Active Substance: TOZINAMERAN
     Indication: COVID-19 prophylaxis
     Route: 042
  5. COMIRNATY (TOZINAMERAN) [Suspect]
     Active Substance: TOZINAMERAN
     Route: 042
     Dates: start: 20210729

REACTIONS (15)
  - Nasopharyngitis [Recovered/Resolved]
  - Cough [Recovered/Resolved]
  - Dyspnoea [Not Recovered/Not Resolved]
  - Rash [Not Recovered/Not Resolved]
  - Spinal stenosis [Recovered/Resolved]
  - SARS-CoV-2 antibody test negative [Unknown]
  - Fall [Unknown]
  - Skin laceration [Recovered/Resolved]
  - Contusion [Recovering/Resolving]
  - Fatigue [Recovered/Resolved]
  - COVID-19 [Recovered/Resolved]
  - Osteoarthritis [Recovering/Resolving]
  - Respiratory tract infection [Recovered/Resolved]
  - Pneumonia [Recovered/Resolved]
  - Chills [Recovered/Resolved]

NARRATIVE: CASE EVENT DATE: 20200131
